FAERS Safety Report 6645008-0 (Version None)
Quarter: 2010Q1

REPORT INFORMATION
  Report Type: 
  Country: None (occurrence: None)
  Receive Date: 20100322
  Receipt Date: 20100312
  Transmission Date: 20100710
  Serious: Yes (Other)
  Sender: FDA-Public Use
  Company Number: PHEH2010US01819

PATIENT
  Sex: Female

DRUGS (2)
  1. EXJADE [Suspect]
     Dosage: 1000 MG, BID
     Route: 048
  2. PRILOSEC [Suspect]

REACTIONS (2)
  - AORTIC STENOSIS [None]
  - MYOCARDIAL INFARCTION [None]
